FAERS Safety Report 9839457 (Version 1)
Quarter: 2014Q1

REPORT INFORMATION
  Report Type: Report from Study
  Country: US (occurrence: US)
  Receive Date: 20140124
  Receipt Date: 20140124
  Transmission Date: 20141002
  Serious: Yes (Hospitalization, Other)
  Sender: FDA-Public Use
  Company Number: US-ROCHE-1331950

PATIENT
  Sex: Male

DRUGS (18)
  1. PULMOZYME [Suspect]
     Indication: SPINAL MUSCULAR ATROPHY
     Dosage: AEROSOL
     Route: 045
  2. PULMOZYME [Suspect]
     Dosage: AEROSOL
     Route: 045
  3. PULMOZYME [Suspect]
     Dosage: AEROSOL
     Route: 045
     Dates: start: 20111220
  4. RANITIDIN [Concomitant]
     Route: 048
  5. POLYETHYLENE GLYCOL [Concomitant]
     Route: 065
  6. LEVALBUTEROL [Concomitant]
     Route: 045
  7. SIMETHICONE [Concomitant]
     Route: 065
  8. ACETAMINOPHEN [Concomitant]
     Route: 065
  9. HEPARIN [Concomitant]
     Dosage: 10 UNIT/ML
     Route: 065
  10. BUDESONIDE [Concomitant]
     Route: 045
  11. DOCUSATE [Concomitant]
     Route: 065
  12. COLACE [Concomitant]
     Route: 065
  13. CEFTRIAXONE [Concomitant]
     Route: 042
  14. IBUPROFEN [Concomitant]
     Route: 048
  15. LIDOCAINE [Concomitant]
     Route: 023
  16. NYSTATIN [Concomitant]
     Route: 061
  17. ZANTAC [Concomitant]
  18. PULMICORT [Concomitant]

REACTIONS (2)
  - Atelectasis [Unknown]
  - Bradycardia [Unknown]
